FAERS Safety Report 4417823-5 (Version None)
Quarter: 2004Q2

REPORT INFORMATION
  Report Type: 
  Country: None (occurrence: None)
  Receive Date: 20040624
  Receipt Date: 20030820
  Transmission Date: 20050107
  Serious: No
  Sender: FDA-Public Use
  Company Number: 2003AP02862

PATIENT
  Age: 82 Year
  Sex: Male
  Weight: 73 kg

DRUGS (8)
  1. BUPIVACAINE [Suspect]
     Indication: LOCAL ANAESTHESIA
     Dosage: 2.5 ML ONCE RBB
     Route: 056
  2. LIDOCAINE [Suspect]
     Indication: LOCAL ANAESTHESIA
     Dosage: 2.5 ML ONCE RBB
     Route: 056
  3. HYALURONIDASE [Suspect]
     Indication: LOCAL ANAESTHESIA
  4. METOPROLOL [Concomitant]
  5. LANSOPRAZOLE [Concomitant]
  6. ASPIRIN [Concomitant]
  7. CISAPRIDE [Concomitant]
  8. TIMOLOL MALEATE [Concomitant]

REACTIONS (3)
  - APNOEA [None]
  - COMA [None]
  - GRAND MAL CONVULSION [None]
